FAERS Safety Report 20436263 (Version 3)
Quarter: 2022Q2

REPORT INFORMATION
  Report Type: Report from Study
  Country: JP (occurrence: JP)
  Receive Date: 20220207
  Receipt Date: 20220419
  Transmission Date: 20220721
  Serious: Yes (Hospitalization)
  Sender: FDA-Public Use
  Company Number: JP-SAKK-2022SA032865AA

PATIENT
  Age: 68 Year
  Sex: Female
  Weight: 46.3 kg

DRUGS (20)
  1. ISATUXIMAB [Suspect]
     Active Substance: ISATUXIMAB
     Indication: Plasma cell myeloma
     Dosage: 10 MG/KG, QOW
     Route: 041
     Dates: start: 20201029, end: 20201112
  2. ISATUXIMAB [Suspect]
     Active Substance: ISATUXIMAB
     Dosage: 10 MG/KG, QOW
     Route: 041
     Dates: start: 20201002, end: 20201016
  3. POMALIDOMIDE [Suspect]
     Active Substance: POMALIDOMIDE
     Indication: Plasma cell myeloma
     Dosage: DAILY DOSE 4 MG
     Route: 065
     Dates: start: 20201112, end: 20201125
  4. POMALIDOMIDE [Suspect]
     Active Substance: POMALIDOMIDE
     Dosage: DAILY DOSE 4 MG
     Route: 065
     Dates: start: 20201002, end: 20201021
  5. POMALIDOMIDE [Suspect]
     Active Substance: POMALIDOMIDE
     Dosage: DAILY DOSE 2 MG
     Route: 065
     Dates: start: 20201029, end: 20201104
  6. DEXAMETHASONE [Suspect]
     Active Substance: DEXAMETHASONE
     Indication: Plasma cell myeloma
     Dosage: 40 MG, QOW
     Route: 065
     Dates: start: 20201029, end: 20201112
  7. DEXAMETHASONE [Suspect]
     Active Substance: DEXAMETHASONE
     Dosage: 40 MG, QOW
     Route: 065
     Dates: start: 20201002, end: 20201016
  8. ATOVAQUONE [Concomitant]
     Active Substance: ATOVAQUONE
     Indication: Infection prophylaxis
     Dosage: DAILY DOSE 750 MG
     Route: 065
     Dates: start: 20190612
  9. FAMOTIDINE [Concomitant]
     Active Substance: FAMOTIDINE
     Indication: Prophylaxis
     Dosage: DAILY DOSE 20 MG
     Route: 065
     Dates: start: 20201002, end: 20201002
  10. FAMOTIDINE [Concomitant]
     Active Substance: FAMOTIDINE
     Dosage: DAILY DOSE 20 MG
     Route: 065
     Dates: start: 20201016, end: 20201016
  11. FAMOTIDINE [Concomitant]
     Active Substance: FAMOTIDINE
     Dosage: DAILY DOSE 20 MG
     Route: 065
     Dates: start: 20201029, end: 20201029
  12. FAMOTIDINE [Concomitant]
     Active Substance: FAMOTIDINE
     Dosage: DAILY DOSE 20 MG
     Route: 065
     Dates: start: 20201112, end: 20201112
  13. DEXCHLORPHENIRAMINE MALEATE [Concomitant]
     Active Substance: DEXCHLORPHENIRAMINE MALEATE
     Indication: Prophylaxis
     Dosage: DAILY DOSE 5 MG
     Route: 065
     Dates: start: 20201002, end: 20201002
  14. DEXCHLORPHENIRAMINE MALEATE [Concomitant]
     Active Substance: DEXCHLORPHENIRAMINE MALEATE
     Dosage: DAILY DOSE 5 MG
     Route: 065
     Dates: start: 20201016, end: 20201016
  15. DEXCHLORPHENIRAMINE MALEATE [Concomitant]
     Active Substance: DEXCHLORPHENIRAMINE MALEATE
     Dosage: DAILY DOSE 5 MG
     Route: 065
     Dates: start: 20201029, end: 20201029
  16. DEXCHLORPHENIRAMINE MALEATE [Concomitant]
     Active Substance: DEXCHLORPHENIRAMINE MALEATE
     Dosage: DAILY DOSE 5 MG
     Route: 065
     Dates: start: 20201112, end: 20201112
  17. ACETAMINOPHEN [Concomitant]
     Active Substance: ACETAMINOPHEN
     Indication: Prophylaxis
     Dosage: DAILY DOSE 600 MG
     Route: 065
     Dates: start: 20201002, end: 20201002
  18. ACETAMINOPHEN [Concomitant]
     Active Substance: ACETAMINOPHEN
     Dosage: DAILY DOSE 600 MG
     Route: 065
     Dates: start: 20201016, end: 20201016
  19. ACETAMINOPHEN [Concomitant]
     Active Substance: ACETAMINOPHEN
     Dosage: DAILY DOSE 600 MG
     Route: 065
     Dates: start: 20201029, end: 20201029
  20. ACETAMINOPHEN [Concomitant]
     Active Substance: ACETAMINOPHEN
     Dosage: DAILY DOSE 600 MG
     Route: 065
     Dates: start: 20201112, end: 20201112

REACTIONS (3)
  - C-reactive protein increased [Recovering/Resolving]
  - White blood cell count decreased [Recovered/Resolved]
  - Platelet count decreased [Recovered/Resolved]

NARRATIVE: CASE EVENT DATE: 20201126
